FAERS Safety Report 7660049-2 (Version None)
Quarter: 2011Q3

REPORT INFORMATION
  Report Type: 
  Country: None (occurrence: None)
  Receive Date: 20110805
  Receipt Date: 20110705
  Transmission Date: 20111222
  Serious: No
  Sender: FDA-Public Use
  Company Number: US-PFIZER INC-2011145599

PATIENT
  Sex: Female
  Weight: 50.794 kg

DRUGS (2)
  1. ADVIL MIGRAINE LIQUI-GELS [Suspect]
     Indication: HEADACHE
     Dosage: 2 CAPSULES 1X/DAY
     Route: 048
     Dates: start: 20100101, end: 20110629
  2. ADVIL MIGRAINE LIQUI-GELS [Suspect]
     Indication: MIGRAINE

REACTIONS (1)
  - DRUG INEFFECTIVE [None]
